FAERS Safety Report 17545505 (Version 1)
Quarter: 2020Q1

REPORT INFORMATION
  Report Type: Spontaneous
  Country: CH (occurrence: CH)
  Receive Date: 20200316
  Receipt Date: 20200316
  Transmission Date: 20200409
  Serious: Yes (Hospitalization)
  Sender: FDA-Public Use
  Company Number: CH-TEVA-2020-CH-1206403

PATIENT
  Sex: Female

DRUGS (13)
  1. CO-AMOXICILLIN [Suspect]
     Active Substance: AMOXICILLIN\CLAVULANATE POTASSIUM
     Indication: URINARY TRACT INFECTION
     Route: 065
  2. HALDOL [Suspect]
     Active Substance: HALOPERIDOL
     Indication: BIPOLAR DISORDER
     Route: 065
     Dates: start: 2008
  3. REMERON [Suspect]
     Active Substance: MIRTAZAPINE
     Route: 065
     Dates: start: 2006
  4. PIPAMPERONE [Suspect]
     Active Substance: PIPAMPERONE
     Route: 065
     Dates: start: 2008
  5. ATENOLOL. [Suspect]
     Active Substance: ATENOLOL
     Indication: ARRHYTHMIA
     Route: 065
     Dates: start: 2007
  6. TRAZODON [Suspect]
     Active Substance: TRAZODONE HYDROCHLORIDE
     Route: 065
     Dates: start: 2008
  7. EISEN [Concomitant]
     Route: 065
  8. TEMESTA (LORAZEPAM) [Suspect]
     Active Substance: LORAZEPAM
     Dosage: OVERDOSE
     Route: 065
  9. BUSPIRONUM [Suspect]
     Active Substance: BUSPIRONE HYDROCHLORIDE
     Route: 065
     Dates: start: 2008
  10. ELEVIT PRONATAL [Concomitant]
     Active Substance: MINERALS\VITAMINS
     Route: 065
  11. DEPAKINE [Suspect]
     Active Substance: VALPROATE SODIUM
     Indication: BIPOLAR DISORDER
     Route: 065
     Dates: start: 200709, end: 2008
  12. GYNO-PEVARYL [Suspect]
     Active Substance: ECONAZOLE NITRATE
     Indication: ANTIFUNGAL PROPHYLAXIS
     Route: 067
  13. VALIUM [Suspect]
     Active Substance: DIAZEPAM
     Dosage: OVERDOSE
     Route: 065

REACTIONS (6)
  - Urinary tract infection [Unknown]
  - Depression [Unknown]
  - Maternal exposure during pregnancy [Unknown]
  - Fear [Unknown]
  - Live birth [Unknown]
  - Suicide attempt [Unknown]

NARRATIVE: CASE EVENT DATE: 20080719
